FAERS Safety Report 5682468-6 (Version None)
Quarter: 2008Q1

REPORT INFORMATION
  Report Type: 
  Country: None (occurrence: None)
  Receive Date: 20080327
  Receipt Date: 20080324
  Transmission Date: 20080703
  Serious: Yes (Hospitalization, Other)
  Sender: FDA-Public Use
  Company Number: US-BRISTOL-MYERS SQUIBB COMPANY-14123848

PATIENT
  Age: 39 Year
  Sex: Male

DRUGS (4)
  1. WARFARIN SODIUM [Suspect]
     Dosage: 1 DOSAGE FORM = WARFARIN DOSE WAS 5 MG/DAY FOR 5 DAYS AND 2.5 MG/DAY FOR 2 DAYS.
  2. SODIUM IODIDE I 131 [Suspect]
  3. PROPRANOLOL HYDROCHLORIDE [Suspect]
  4. THIAMAZOLE [Concomitant]

REACTIONS (3)
  - GINGIVAL BLEEDING [None]
  - HYPERTHYROIDISM [None]
  - PROTHROMBIN TIME PROLONGED [None]
